FAERS Safety Report 13306220 (Version 1)
Quarter: 2017Q1

REPORT INFORMATION
  Report Type: Other
  Country: AU (occurrence: AU)
  Receive Date: 20170308
  Receipt Date: 20170308
  Transmission Date: 20170428
  Serious: No
  Sender: FDA-Public Use
  Company Number: AU-LEADING PHARMA-1063967

PATIENT
  Age: 70 Year

DRUGS (1)
  1. FOLIC ACID. [Suspect]
     Active Substance: FOLIC ACID

REACTIONS (2)
  - Vitamin B12 deficiency [Unknown]
  - Condition aggravated [None]
